FAERS Safety Report 5794085-8 (Version None)
Quarter: 2008Q2

REPORT INFORMATION
  Report Type: 
  Country: None (occurrence: None)
  Receive Date: 20080627
  Receipt Date: 20080617
  Transmission Date: 20081010
  Serious: Yes (Other)
  Sender: FDA-Public Use
  Company Number: ES-PFIZER INC-2008045277

PATIENT
  Age: 70 Year
  Sex: Female

DRUGS (6)
  1. LYRICA [Suspect]
     Indication: SCIATICA
     Route: 048
     Dates: start: 20080405, end: 20080410
  2. LANTUS [Concomitant]
     Indication: TYPE 2 DIABETES MELLITUS
     Dosage: TEXT:34 UI/KG
     Route: 058
  3. COAPROVEL [Concomitant]
     Indication: HYPERTENSION
     Dosage: TEXT:300/12'5 MG
     Route: 048
  4. RAMIPRIL [Concomitant]
     Indication: DIABETIC NEPHROPATHY
     Route: 048
     Dates: start: 20080220, end: 20080421
  5. PREVENCOR [Concomitant]
     Indication: HYPERLIPIDAEMIA
     Route: 048
  6. PLAVIX [Concomitant]
     Indication: INSULIN-REQUIRING TYPE 2 DIABETES MELLITUS
     Route: 048

REACTIONS (4)
  - ANURIA [None]
  - DIABETIC NEPHROPATHY [None]
  - DIARRHOEA [None]
  - GENERALISED OEDEMA [None]
